FAERS Safety Report 10191459 (Version 1)
Quarter: 2014Q2

REPORT INFORMATION
  Report Type: Spontaneous
  Country: US (occurrence: US)
  Receive Date: 20140523
  Receipt Date: 20140523
  Transmission Date: 20141212
  Serious: Yes (Hospitalization)
  Sender: FDA-Public Use
  Company Number: US-ASTRAZENECA-2014SE34356

PATIENT
  Sex: Female

DRUGS (1)
  1. SYMBICORT [Suspect]
     Indication: CHRONIC OBSTRUCTIVE PULMONARY DISEASE
     Route: 055

REACTIONS (8)
  - Pneumonia [Unknown]
  - Bronchial disorder [Unknown]
  - Respiratory disorder [Unknown]
  - Adverse event [Unknown]
  - Throat irritation [Unknown]
  - Palpitations [Unknown]
  - Tremor [Unknown]
  - Nervousness [Unknown]
